FAERS Safety Report 24686899 (Version 1)
Quarter: 2024Q4

REPORT INFORMATION
  Report Type: Spontaneous
  Country: US (occurrence: US)
  Receive Date: 20241202
  Receipt Date: 20241202
  Transmission Date: 20250115
  Serious: Yes (Other)
  Sender: ARBONNE
  Company Number: US-ARBONNE-2024-US-062197

PATIENT
  Age: 39 Year
  Sex: Female

DRUGS (7)
  1. CLEAR FUTURE MATTIFYING ACNE TREATMENT [Suspect]
     Active Substance: SALICYLIC ACID
     Indication: Acne
     Dosage: APPLIED AS DIRECTED 1 TO 2 TIMES A DAY
     Route: 061
     Dates: start: 202407, end: 20241105
  2. CLEAR FUTURE INTENSIVE ACNE SPOT TREATMENT [Suspect]
     Active Substance: SALICYLIC ACID
     Indication: Acne
     Dosage: APPLIED AS DIRECTED 1 TO 2 TIMES A DAY
     Route: 061
     Dates: start: 202407, end: 20241105
  3. CLEAR FUTURE CORRECTIVE TREATMENT [Suspect]
     Active Substance: SALICYLIC ACID
     Indication: Acne
     Dosage: APPLIED AS DIRECTED 1 TO 2 TIMES A DAY
     Route: 061
     Dates: start: 202407, end: 20241105
  4. CLEAR FUTURE DEEP PORE CLEANSER [Suspect]
     Active Substance: SALICYLIC ACID
     Indication: Acne
     Dosage: APPLIED AS DIRECTED 1 TO 2 TIMES A DAY
     Route: 061
     Dates: start: 202407, end: 20241105
  5. VITAMINS [Concomitant]
     Active Substance: VITAMINS
  6. UNSPECIFIED INGREDIENT [Concomitant]
     Active Substance: UNSPECIFIED INGREDIENT
  7. unspecified Tula cosmetic products [Concomitant]

REACTIONS (6)
  - Acne [Recovered/Resolved]
  - Cellulitis [Unknown]
  - Application site swelling [Recovered/Resolved]
  - Application site irritation [Recovered/Resolved]
  - Application site erythema [Recovered/Resolved]
  - Application site warmth [Recovered/Resolved]

NARRATIVE: CASE EVENT DATE: 20240901
